FAERS Safety Report 5403466-3 (Version None)
Quarter: 2007Q3

REPORT INFORMATION
  Report Type: 
  Country: None (occurrence: None)
  Receive Date: 20070730
  Receipt Date: 20070714
  Transmission Date: 20080115
  Serious: Yes (Other)
  Sender: FDA-Public Use
  Company Number: PHNU2007DE02562

PATIENT
  Sex: Female

DRUGS (2)
  1. VISUDYNE [Suspect]
     Indication: MACULAR DEGENERATION
     Dates: start: 20070712, end: 20070712
  2. LUCENTIS [Suspect]
     Indication: MACULAR DEGENERATION
     Dates: start: 20070712, end: 20070712

REACTIONS (1)
  - VOMITING [None]
